FAERS Safety Report 21260839 (Version 1)
Quarter: 2022Q3

REPORT INFORMATION
  Report Type: Spontaneous
  Country: CA (occurrence: CA)
  Receive Date: 20220826
  Receipt Date: 20220826
  Transmission Date: 20221027
  Serious: Yes (Death, Hospitalization, Other)
  Sender: FDA-Public Use
  Company Number: None

PATIENT

DRUGS (1)
  1. METHOTREXATE [Suspect]
     Active Substance: METHOTREXATE
     Indication: Inflammation
     Route: 065

REACTIONS (7)
  - Infection [Fatal]
  - Pancytopenia [Fatal]
  - Product dispensing error [Fatal]
  - Toxicity to various agents [Fatal]
  - Drug monitoring procedure not performed [Unknown]
  - Mucosal inflammation [Unknown]
  - Product prescribing error [Unknown]
